FAERS Safety Report 4681616-4 (Version None)
Quarter: 2005Q2

REPORT INFORMATION
  Report Type: 
  Country: None (occurrence: None)
  Receive Date: 20050602
  Receipt Date: 20050302
  Transmission Date: 20051028
  Serious: Yes (Life-Threatening, Hospitalization)
  Sender: FDA-Public Use
  Company Number: 2005051069

PATIENT
  Age: 81 Year
  Sex: Female
  Weight: 60.3284 kg

DRUGS (2)
  1. DETROL [Suspect]
     Indication: ILL-DEFINED DISORDER
  2. OXYBUTYNIN CHLORIDE [Suspect]
     Indication: INCONTINENCE
     Dosage: (3.9 MG, 1 IN 1  WK) TRANSDERMAL
     Route: 062
     Dates: start: 20050201

REACTIONS (3)
  - DRY MOUTH [None]
  - EAR PAIN [None]
  - INCONTINENCE [None]
